FAERS Safety Report 16016845 (Version 1)
Quarter: 2019Q1

REPORT INFORMATION
  Report Type: Spontaneous
  Country: US (occurrence: US)
  Receive Date: 20190228
  Receipt Date: 20190228
  Transmission Date: 20190418
  Serious: No
  Sender: FDA-Public Use
  Company Number: US-PFIZER INC-2019072833

PATIENT
  Age: 75 Year
  Sex: Male
  Weight: 94.35 kg

DRUGS (4)
  1. LYRICA [Suspect]
     Active Substance: PREGABALIN
     Indication: NEURALGIA
     Dosage: 75 MG, 1X/DAY
     Dates: start: 201803
  2. IBUPROFEN. [Concomitant]
     Active Substance: IBUPROFEN
     Dosage: 1200 MG, ONCE A DAY (600 MG, ONCE A DAY, TWO AT A TIME)
  3. ZANTAC [Concomitant]
     Active Substance: RANITIDINE HYDROCHLORIDE
     Dosage: 150 MG, ONCE A DAY
  4. LYRICA [Suspect]
     Active Substance: PREGABALIN
     Dosage: 150 MG, (TWO 75 MG CAPS)

REACTIONS (1)
  - Drug ineffective [Recovering/Resolving]
